FAERS Safety Report 8055703-7 (Version None)
Quarter: 2012Q1

REPORT INFORMATION
  Report Type: 
  Country: None (occurrence: None)
  Receive Date: 20120119
  Receipt Date: 20120113
  Transmission Date: 20120608
  Serious: Yes (Other)
  Sender: FDA-Public Use
  Company Number: US-AMGEN-USASP2012002574

PATIENT
  Age: 83 Year
  Sex: Female

DRUGS (4)
  1. DIOVAN [Concomitant]
  2. PREDNISONE [Concomitant]
     Dosage: UNK
  3. VITAMIN TAB [Concomitant]
  4. NPLATE [Suspect]
     Indication: IDIOPATHIC THROMBOCYTOPENIC PURPURA
     Dates: start: 20101201

REACTIONS (2)
  - LINEAR IGA DISEASE [None]
  - HYPERTENSION [None]
